FAERS Safety Report 7073721-2 (Version None)
Quarter: 2010Q4

REPORT INFORMATION
  Report Type: 
  Country: None (occurrence: None)
  Receive Date: 20101029
  Receipt Date: 20100805
  Transmission Date: 20110411
  Serious: No
  Sender: FDA-Public Use
  Company Number: A0874210A

PATIENT
  Age: 68 Year
  Sex: Female

DRUGS (6)
  1. ADVAIR DISKUS 100/50 [Suspect]
     Indication: CHRONIC OBSTRUCTIVE PULMONARY DISEASE
     Dosage: 1PUFF PER DAY
     Route: 055
     Dates: start: 20100101
  2. ANTI-HYPERTENSIVE [Concomitant]
  3. AMITRIPTYLINE HCL [Concomitant]
  4. LEVOTHYROXINE [Concomitant]
  5. PREVACID [Concomitant]
  6. ANTIBIOTIC (UNKNOWN) [Concomitant]

REACTIONS (3)
  - BRONCHITIS [None]
  - COUGH [None]
  - DYSPNOEA [None]
